FAERS Safety Report 14958995 (Version 2)
Quarter: 2019Q1

REPORT INFORMATION
  Report Type: Spontaneous
  Country: GB (occurrence: GB)
  Receive Date: 20180531
  Receipt Date: 20190123
  Transmission Date: 20190417
  Serious: Yes (Death, Hospitalization)
  Sender: FDA-Public Use
  Company Number: GB-TEVA-2018-GB-899644

PATIENT
  Age: 73 Year

DRUGS (11)
  1. DIGOXIN. [Suspect]
     Active Substance: DIGOXIN
     Dosage: 125 MICROGRAM DAILY; MORNING
     Route: 048
  2. THIAMINE. [Concomitant]
     Active Substance: THIAMINE
  3. LANSOPRAZOLE. [Concomitant]
     Active Substance: LANSOPRAZOLE
  4. IBUPROFEN. [Suspect]
     Active Substance: IBUPROFEN
     Dosage: UNKNOWN - NO DOSE MENTIONED IN NOTES
     Route: 048
  5. FERROUS FUMARATE [Concomitant]
     Active Substance: FERROUS FUMARATE
  6. BUMETANIDE. [Concomitant]
     Active Substance: BUMETANIDE
     Dosage: .5 MILLIGRAM DAILY; MORNING
     Route: 048
  7. TIOTROPIUM BROMIDE [Concomitant]
     Active Substance: TIOTROPIUM BROMIDE
  8. SPIRONOLACTONE. [Concomitant]
     Active Substance: SPIRONOLACTONE
     Dosage: 25 MILLIGRAM DAILY; MORNING
     Route: 048
  9. BISOPROLOL [Suspect]
     Active Substance: BISOPROLOL
     Dosage: 2.5 MILLIGRAM DAILY;
     Route: 048
  10. XARELTO [Suspect]
     Active Substance: RIVAROXABAN
     Dosage: 20 MILLIGRAM DAILY;
     Route: 048
  11. SALBUTAMOL [Concomitant]
     Active Substance: ALBUTEROL

REACTIONS (7)
  - Acute kidney injury [Fatal]
  - Platelet count decreased [Fatal]
  - Atrial fibrillation [Fatal]
  - Bradycardia [Fatal]
  - Cardiac failure [Fatal]
  - Toxicity to various agents [Fatal]
  - Atrioventricular block [Fatal]
